FAERS Safety Report 24597766 (Version 2)
Quarter: 2024Q4

REPORT INFORMATION
  Report Type: Spontaneous
  Country: US (occurrence: US)
  Receive Date: 20241110
  Receipt Date: 20241127
  Transmission Date: 20250115
  Serious: No
  Sender: SANOFI AVENTIS
  Company Number: US-SA-2024SA308037

PATIENT
  Age: 72 Year
  Sex: Female

DRUGS (1)
  1. DUPIXENT [Suspect]
     Active Substance: DUPILUMAB
     Indication: Neurodermatitis
     Dosage: 300 MG, QOW
     Route: 058

REACTIONS (6)
  - Visual impairment [Unknown]
  - Nasal congestion [Unknown]
  - Sneezing [Unknown]
  - Dyspnoea [Unknown]
  - Initial insomnia [Unknown]
  - Eye irritation [Unknown]

NARRATIVE: CASE EVENT DATE: 20241017
